FAERS Safety Report 9637897 (Version 1)
Quarter: 2013Q4

REPORT INFORMATION
  Report Type: Spontaneous
  Country: US (occurrence: US)
  Receive Date: 20131022
  Receipt Date: 20131022
  Transmission Date: 20140711
  Serious: No
  Sender: FDA-Public Use
  Company Number: US-B.I. PHARMACEUTICALS,INC./RIDGEFIELD-2013-BI-28876BP

PATIENT
  Age: 39 Year
  Sex: Male

DRUGS (3)
  1. GILOTRIF [Suspect]
     Route: 048
     Dates: start: 20130910
  2. PAIN MEDICATIONS [Concomitant]
  3. COLACE [Concomitant]
     Indication: DIARRHOEA

REACTIONS (3)
  - Haematochezia [Unknown]
  - Diarrhoea [Unknown]
  - Constipation [Unknown]
